FAERS Safety Report 5107540-0 (Version None)
Quarter: 2006Q3

REPORT INFORMATION
  Report Type: 
  Country: None (occurrence: None)
  Receive Date: 20060911
  Receipt Date: 20060825
  Transmission Date: 20061208
  Serious: Yes (Other)
  Sender: FDA-Public Use
  Company Number: GAM-114-06-US

PATIENT
  Sex: Male
  Weight: 100 kg

DRUGS (4)
  1. OCTAGAM [Suspect]
     Indication: NEUROPATHY
     Dates: start: 20051025
  2. HUMALOG [Concomitant]
  3. MORPHINE [Concomitant]
  4. WELLBUTRION (BUPROPIONE) [Concomitant]

REACTIONS (3)
  - BLOOD GLUCOSE INCREASED [None]
  - HYPOGLYCAEMIA [None]
  - LABORATORY TEST INTERFERENCE [None]
